FAERS Safety Report 5136506-X (Version None)
Quarter: 2006Q4

REPORT INFORMATION
  Report Type: 
  Country: None (occurrence: None)
  Receive Date: 20061020
  Receipt Date: 20061005
  Transmission Date: 20070319
  Serious: Yes (Hospitalization)
  Sender: FDA-Public Use
  Company Number: 230768

PATIENT
  Age: 46 Year
  Sex: Male

DRUGS (1)
  1. RAPTIVA [Suspect]
     Indication: DRUG USE FOR UNKNOWN INDICATION
     Dates: start: 20060301, end: 20060801

REACTIONS (4)
  - FATIGUE [None]
  - INFECTIOUS MONONUCLEOSIS [None]
  - PLATELET COUNT DECREASED [None]
  - TRANSAMINASES INCREASED [None]
